FAERS Safety Report 5529288-0 (Version None)
Quarter: 2007Q4

REPORT INFORMATION
  Report Type: 
  Country: None (occurrence: None)
  Receive Date: 20071129
  Receipt Date: 20071119
  Transmission Date: 20080405
  Serious: Yes (Hospitalization)
  Sender: FDA-Public Use
  Company Number: US-ROCHE-532585

PATIENT
  Age: 71 Year
  Sex: Female
  Weight: 74.8 kg

DRUGS (22)
  1. CAPECITABINE [Suspect]
     Route: 048
     Dates: start: 20071029
  2. BEVACIZUMAB [Suspect]
     Dosage: LAST DOSE PRIOR TO SAE: 29 OCT 2007
     Route: 042
     Dates: start: 20071029, end: 20071119
  3. OXALIPLATIN [Suspect]
     Dosage: LAST DOSE PRIOR TO SAE 29 OCT 2007.
     Route: 042
     Dates: start: 20071029
  4. BYETTA [Concomitant]
  5. PROCHLORPERAZINE MALEATE [Concomitant]
  6. PHILLIPS' MOM [Concomitant]
  7. LORTAB [Concomitant]
  8. FISH OIL [Concomitant]
  9. TYLENOL (CAPLET) [Concomitant]
     Dosage: DRUG REPORTED: TYENOL ARTHRITIS PAIN
  10. AVANDIA [Concomitant]
  11. ACIPHEX [Concomitant]
  12. GLYBURIDE [Concomitant]
  13. FUROSEMIDE [Concomitant]
  14. FERROUS SULFATE TAB [Concomitant]
  15. CAPTOPRIL [Concomitant]
  16. LOFIBRA [Concomitant]
  17. XALATAN [Concomitant]
  18. TIMOLOL MALEATE [Concomitant]
  19. BENADRYL [Concomitant]
  20. YUCCA [Concomitant]
  21. GLUCOSAMINE SULFATE/CHONDROITIN [Concomitant]
     Dosage: DRUG REPORTED: GLUCOSAMINE CHONDROITIN
  22. VITAMINS NOS [Concomitant]
     Dosage: DRUG REPORTED: VITAMIN TABLETS

REACTIONS (2)
  - ABDOMINAL PAIN [None]
  - HAEMATEMESIS [None]
